FAERS Safety Report 9881090 (Version 3)
Quarter: 2014Q2

REPORT INFORMATION
  Report Type: Spontaneous
  Country: IT (occurrence: IT)
  Receive Date: 20140207
  Receipt Date: 20140422
  Transmission Date: 20141212
  Serious: Yes (Hospitalization)
  Sender: FDA-Public Use
  Company Number: IT-009507513-1402ITA001136

PATIENT
  Age: 73 Year
  Sex: Male
  Weight: 75 kg

DRUGS (3)
  1. PEGINTRON [Suspect]
     Dosage: 80 MICROGRAM, QW
     Dates: start: 20131001, end: 20140121
  2. REBETOL [Suspect]
     Dosage: 400 MG DAILY
     Route: 048
     Dates: start: 20131001, end: 20140123
  3. TELAPREVIR [Suspect]
     Dosage: 2250 MG DAILY
     Dates: start: 20131119, end: 20140123

REACTIONS (3)
  - Cardiac failure [Recovering/Resolving]
  - Anaemia [Recovering/Resolving]
  - Rash pustular [Unknown]
